FAERS Safety Report 7830395-8 (Version None)
Quarter: 2011Q4

REPORT INFORMATION
  Report Type: 
  Country: None (occurrence: None)
  Receive Date: 20111021
  Receipt Date: 20111011
  Transmission Date: 20120403
  Serious: Yes (Life-Threatening, Hospitalization)
  Sender: FDA-Public Use
  Company Number: DE-PFIZER INC-2011229609

PATIENT
  Age: 71 Year
  Sex: Female
  Weight: 57 kg

DRUGS (5)
  1. FLUOROURACIL [Suspect]
     Indication: BREAST CANCER
     Dosage: 850 MG, 1X/DAY
     Route: 042
     Dates: start: 20090504, end: 20090615
  2. EXEMESTANE [Suspect]
     Indication: BREAST CANCER
     Dosage: 25 MG, UNK
     Route: 048
     Dates: start: 20090910
  3. DOCETAXEL [Suspect]
     Indication: BREAST CANCER
     Dosage: 171 MG, 1X/DAY
     Route: 042
     Dates: start: 20090706, end: 20090818
  4. CYCLOPHOSPHAMIDE [Suspect]
     Indication: BREAST CANCER
     Dosage: 815 MG, 1X/DAY
     Route: 042
     Dates: start: 20090504, end: 20090615
  5. EPIRUBICIN HYDROCHLORIDE [Suspect]
     Indication: BREAST CANCER
     Dosage: 815 MG, 1X/DAY
     Route: 042
     Dates: start: 20090504, end: 20090615

REACTIONS (1)
  - CARDIAC ARREST [None]
